FAERS Safety Report 18897124 (Version 1)
Quarter: 2021Q1

REPORT INFORMATION
  Report Type: Spontaneous
  Country: US (occurrence: US)
  Receive Date: 20210215
  Receipt Date: 20210215
  Transmission Date: 20210420
  Serious: Yes (Hospitalization)
  Sender: FDA-Public Use
  Company Number: None

PATIENT
  Age: 77 Year
  Sex: Male
  Weight: 90 kg

DRUGS (11)
  1. BAMLANIVIMAB. [Suspect]
     Active Substance: BAMLANIVIMAB
     Indication: COVID-19
     Dosage: ?          OTHER FREQUENCY:ONCE;?
     Route: 041
     Dates: start: 20210118, end: 20210118
  2. REMDESIVIR. [Concomitant]
     Active Substance: REMDESIVIR
     Dates: start: 20210126, end: 20210130
  3. ZINC SULFATE. [Concomitant]
     Active Substance: ZINC SULFATE
     Dates: start: 20210126, end: 20210130
  4. ASCORBIC ACID IVPB [Concomitant]
     Dates: start: 20210126, end: 20210130
  5. MAGNESIUM IV [Concomitant]
     Dates: start: 20210126, end: 20210130
  6. ACETAMINOPHEN. [Concomitant]
     Active Substance: ACETAMINOPHEN
     Dates: start: 20210126, end: 20210130
  7. DEXAMETHASONE. [Concomitant]
     Active Substance: DEXAMETHASONE
     Dates: start: 20210126, end: 20210130
  8. FUROSEMIDE. [Concomitant]
     Active Substance: FUROSEMIDE
     Dates: start: 20210126, end: 20210130
  9. ALBUTEROL. [Concomitant]
     Active Substance: ALBUTEROL
     Dates: start: 20210126, end: 20210126
  10. HEPARIN [Concomitant]
     Active Substance: HEPARIN SODIUM
     Dates: start: 20210126, end: 20210128
  11. PYRIDOXINE [Concomitant]
     Active Substance: PYRIDOXINE
     Dates: start: 20210128, end: 20210130

REACTIONS (7)
  - Dyspnoea [None]
  - Chest discomfort [None]
  - Fluid overload [None]
  - Pyrexia [None]
  - Diarrhoea [None]
  - Chills [None]
  - Cough [None]

NARRATIVE: CASE EVENT DATE: 20210118
